FAERS Safety Report 4876878-4 (Version None)
Quarter: 2005Q4

REPORT INFORMATION
  Report Type: 
  Country: None (occurrence: None)
  Receive Date: 20051206
  Receipt Date: 20050801
  Transmission Date: 20060501
  Serious: No
  Sender: FDA-Public Use
  Company Number: USA0508104296

PATIENT
  Age: 21 Year
  Sex: Female

DRUGS (5)
  1. CYMBALTA [Suspect]
     Indication: DEPRESSION
     Dosage: 60 MG/2 DAY
     Dates: start: 20050601
  2. TEGRETOL [Concomitant]
  3. NEURONTIN [Concomitant]
  4. GEODON [Concomitant]
  5. ABILIFY [Concomitant]

REACTIONS (3)
  - ACTIVITIES OF DAILY LIVING IMPAIRED [None]
  - DYSKINESIA [None]
  - WEIGHT DECREASED [None]
